FAERS Safety Report 4428663-5 (Version None)
Quarter: 2004Q3

REPORT INFORMATION
  Report Type: 
  Country: None (occurrence: None)
  Receive Date: 20040818
  Receipt Date: 20030922
  Transmission Date: 20050211
  Serious: No
  Sender: FDA-Public Use
  Company Number: US-BRISTOL-MYERS SQUIBB COMPANY-12393005

PATIENT
  Age: 65 Year
  Sex: Female
  Weight: 68 kg

DRUGS (11)
  1. TEQUIN [Suspect]
     Indication: SINUSITIS
     Dosage: EXPIRATION DATE 31-DEC-2003
     Route: 048
     Dates: start: 20030919, end: 20030919
  2. PRAVACHOL [Concomitant]
  3. LISINOPRIL [Concomitant]
  4. TRICOR [Concomitant]
  5. LASIX [Concomitant]
  6. CLONIDINE HCL [Concomitant]
  7. FOLIC ACID [Concomitant]
  8. NORVASC [Concomitant]
  9. IRON [Concomitant]
  10. HUMALOG [Concomitant]
     Dosage: (75/25) 16 UNITS IN THE MORNING.
  11. LANTUS [Concomitant]
     Dosage: 18 UNITS AT NIGHT.

REACTIONS (1)
  - VOMITING [None]
